FAERS Safety Report 23067825 (Version 1)
Quarter: 2023Q4

REPORT INFORMATION
  Report Type: Spontaneous
  Country: GB (occurrence: GB)
  Receive Date: 20231016
  Receipt Date: 20231016
  Transmission Date: 20240110
  Serious: Yes (Hospitalization, Other)
  Sender: FDA-Public Use
  Company Number: GB-EPICPHARMA-GB-2023EPCLIT01481

PATIENT
  Age: 67 Year
  Sex: Male

DRUGS (2)
  1. SULFADIAZINE [Suspect]
     Active Substance: SULFADIAZINE
     Indication: Eye infection toxoplasmal
     Route: 065
  2. PYRIMETHAMINE [Concomitant]
     Active Substance: PYRIMETHAMINE
     Indication: Eye infection toxoplasmal
     Route: 065

REACTIONS (3)
  - Acute kidney injury [Recovered/Resolved]
  - Nephrolithiasis [Recovered/Resolved]
  - Product use in unapproved indication [Unknown]
